FAERS Safety Report 15280894 (Version 1)
Quarter: 2018Q3

REPORT INFORMATION
  Report Type: Spontaneous
  Country: US (occurrence: US)
  Receive Date: 20180730
  Receipt Date: 20180730
  Transmission Date: 20181010
  Serious: Yes (Life-Threatening, Hospitalization, Disabling, Other)
  Sender: FDA-Public Use
  Company Number: None

PATIENT
  Age: 71 Year
  Sex: Female
  Weight: 49.9 kg

DRUGS (1)
  1. KEVZARA [Suspect]
     Active Substance: SARILUMAB
     Indication: RHEUMATOID ARTHRITIS
     Dosage: ?          QUANTITY:; :MTFIFIR/A U;?
     Dates: start: 20180703, end: 20180703

REACTIONS (6)
  - Lung infection [None]
  - Rash [None]
  - Peripheral swelling [None]
  - Lip swelling [None]
  - Swelling face [None]
  - White blood cell count decreased [None]

NARRATIVE: CASE EVENT DATE: 20180707
